FAERS Safety Report 16880461 (Version 1)
Quarter: 2019Q4

REPORT INFORMATION
  Report Type: Spontaneous
  Country: US (occurrence: US)
  Receive Date: 20190807
  Receipt Date: 20190807
  Transmission Date: 20200122
  Serious: No
  Sender: FDA-Public Use
  Company Number: None

PATIENT

DRUGS (2)
  1. NITROGLYCERIN. [Suspect]
     Active Substance: NITROGLYCERIN
  2. NITROPRUSSIDE SODIUM INJECTION [Suspect]
     Active Substance: SODIUM NITROPRUSSIDE

REACTIONS (6)
  - Wrong product administered [None]
  - Loss of consciousness [None]
  - Product dispensing error [None]
  - Blood pressure decreased [None]
  - Product prescribing error [None]
  - Product name confusion [None]
